FAERS Safety Report 19063635 (Version 2)
Quarter: 2021Q2

REPORT INFORMATION
  Report Type: Other
  Country: US (occurrence: US)
  Receive Date: 20210326
  Receipt Date: 20210621
  Transmission Date: 20210717
  Serious: Yes (Death, Hospitalization)
  Sender: FDA-Public Use
  Company Number: US-NEUROCRINE BIOSCIENCES INC.-2021NBI01394

PATIENT

DRUGS (30)
  1. INGREZZA [Suspect]
     Active Substance: VALBENAZINE
     Indication: TARDIVE DYSKINESIA
     Dosage: 40 MILLIGRAM, QD
     Route: 048
     Dates: start: 20191226
  2. AMLODIPINE BESILATE [Concomitant]
     Active Substance: AMLODIPINE BESYLATE
     Dosage: 5 MILLIGRAM, QD
     Route: 048
     Dates: start: 20210104
  3. ALBUTEROL SULFATE HFA [Concomitant]
     Active Substance: ALBUTEROL SULFATE
     Dosage: UNK
     Dates: start: 20140423
  4. ZINC SULFATE. [Concomitant]
     Active Substance: ZINC SULFATE
     Dosage: 220 MILLIGRAM
     Route: 048
     Dates: start: 20210208
  5. SENNA S [Concomitant]
     Active Substance: DOCUSATE SODIUM\SENNA LEAF
     Dosage: 1 DOSAGE FORM, BID
     Dates: start: 20201218
  6. SPIRIVA RESPIMAT [Concomitant]
     Active Substance: TIOTROPIUM BROMIDE
     Dosage: UNK
     Dates: start: 20210131
  7. BENEFIBER FIBER SUPPLEMENT [Concomitant]
     Dosage: UNK
     Route: 048
     Dates: start: 20201029
  8. DIPHENHYDRAMINE HCL [Concomitant]
     Active Substance: DIPHENHYDRAMINE HYDROCHLORIDE
     Dosage: UNK UNK, QHS
     Dates: start: 20210125
  9. ADVAIR HFA [Concomitant]
     Active Substance: FLUTICASONE PROPIONATE\SALMETEROL XINAFOATE
     Dosage: UNK, BID
     Dates: start: 20210106
  10. CRANBERRY CR [Concomitant]
     Dosage: 250 MILLIGRAM, QD
     Route: 048
     Dates: start: 20200630
  11. ASCORBIC ACID. [Concomitant]
     Active Substance: ASCORBIC ACID
     Dosage: 1000 MILLIGRAM
     Route: 048
     Dates: start: 20210208
  12. RABEPRAZOLE SODIUM. [Concomitant]
     Active Substance: RABEPRAZOLE SODIUM
     Dosage: 20 MILLIGRAM, TID
     Route: 048
     Dates: start: 20200914
  13. ASCORBIC ACID. [Concomitant]
     Active Substance: ASCORBIC ACID
     Dosage: 1000 MILLIGRAM, BID
     Dates: start: 20201226
  14. LEVOFLOXACIN. [Concomitant]
     Active Substance: LEVOFLOXACIN
     Dosage: 500 MILLIGRAM
     Route: 048
     Dates: start: 20210208
  15. THEOPHYLLINE [Concomitant]
     Active Substance: THEOPHYLLINE ANHYDROUS
     Dosage: 300 MILLIGRAM, QD
     Route: 048
     Dates: start: 20210121
  16. ONDANSETRON HCL [Concomitant]
     Active Substance: ONDANSETRON HYDROCHLORIDE
     Dosage: 8 MILLIGRAM
     Route: 048
     Dates: start: 20201127
  17. IPRATROPIUM/ALBUTEROL [Concomitant]
     Active Substance: ALBUTEROL\IPRATROPIUM
     Dosage: UNK, QID
     Dates: start: 20180326
  18. TRIPLE FLEX [CHONDROITIN SULFATE;GLUCOSAMINE HYDROCHLORIDE;METHYLSULFO [Concomitant]
     Dosage: UNK
     Route: 048
     Dates: start: 20201229
  19. ACETAMINOPHEN. [Concomitant]
     Active Substance: ACETAMINOPHEN
     Dosage: 500 MILLIGRAM, QID (AS NEEDED)
     Route: 048
  20. SINGULAIR [Concomitant]
     Active Substance: MONTELUKAST SODIUM
     Dosage: 10 MILLIGRAM, QD
     Route: 048
     Dates: start: 20200821
  21. VITAMIN D3 [Concomitant]
     Active Substance: CHOLECALCIFEROL
     Dosage: 125 MICROGRAM
     Route: 048
     Dates: start: 20210208
  22. MELATONIN [Concomitant]
     Active Substance: MELATONIN
     Dosage: 5 MILLIGRAM, QHS
     Route: 048
     Dates: start: 20201229
  23. SPIRIVA RESPIMAT [Concomitant]
     Active Substance: TIOTROPIUM BROMIDE
     Dosage: UNK
     Dates: start: 20200130
  24. SUCRALFATE. [Concomitant]
     Active Substance: SUCRALFATE
     Dosage: 1 GRAM, BID
     Route: 048
     Dates: start: 20201217
  25. ENOXAPARIN SODIUM. [Concomitant]
     Active Substance: ENOXAPARIN SODIUM
     Dosage: 30 MILLIGRAM
     Route: 058
     Dates: start: 20210214
  26. AZELASTINE HCL [Concomitant]
     Active Substance: AZELASTINE HYDROCHLORIDE
     Dosage: 137 MICROGRAM, BID
     Dates: start: 20210125
  27. NYSTATIN. [Concomitant]
     Active Substance: NYSTATIN
     Dosage: UNK, QID
     Route: 048
     Dates: start: 20210106
  28. PREDNISONE. [Concomitant]
     Active Substance: PREDNISONE
     Dosage: 10 MILLIGRAM, QD
     Route: 048
     Dates: start: 20201229
  29. METRONIDAZOLE. [Concomitant]
     Active Substance: METRONIDAZOLE
     Dosage: 500 MILLIGRAM
     Route: 048
     Dates: start: 20210208
  30. MELATONIN [Concomitant]
     Active Substance: MELATONIN
     Dosage: 6 MILLIGRAM
     Route: 048
     Dates: start: 20210202

REACTIONS (5)
  - Cardiac arrest [Recovered/Resolved]
  - Ischaemic hepatitis [Unknown]
  - Acute respiratory failure [Fatal]
  - COVID-19 pneumonia [Fatal]
  - Gastrointestinal haemorrhage [Unknown]

NARRATIVE: CASE EVENT DATE: 20210213
